FAERS Safety Report 13226631 (Version 2)
Quarter: 2017Q1

REPORT INFORMATION
  Report Type: Spontaneous
  Country: RO (occurrence: RO)
  Receive Date: 20170213
  Receipt Date: 20170323
  Transmission Date: 20170428
  Serious: Yes (Hospitalization)
  Sender: FDA-Public Use
  Company Number: RO-SA-2017SA022157

PATIENT
  Age: 7 Year
  Sex: Male
  Weight: 18 kg

DRUGS (11)
  1. ISONIAZID. [Suspect]
     Active Substance: ISONIAZID
     Dosage: 20 MG/KG
     Route: 065
  2. ETHAMBUTOL [Suspect]
     Active Substance: ETHAMBUTOL HYDROCHLORIDE
     Route: 065
  3. GENTAMICIN. [Concomitant]
     Active Substance: GENTAMICIN
  4. STREPTOMYCIN [Suspect]
     Active Substance: STREPTOMYCIN\STREPTOMYCIN SULFATE
     Route: 065
  5. PREDNISONE. [Concomitant]
     Active Substance: PREDNISONE
  6. ISONIAZID. [Suspect]
     Active Substance: ISONIAZID
     Dosage: 100 MG, 2 TABLETS EACH 6 HOURS
     Route: 065
  7. PENICILLIN [Concomitant]
     Active Substance: PENICILLIN
  8. OXACILLIN [Concomitant]
     Active Substance: OXACILLIN SODIUM
  9. RIFAMPICIN [Suspect]
     Active Substance: RIFAMPIN
     Route: 065
  10. RIFAMPICIN [Suspect]
     Active Substance: RIFAMPIN
     Route: 065
  11. AMPICILLIN [Concomitant]
     Active Substance: AMPICILLIN

REACTIONS (37)
  - Hyperreflexia [Recovered/Resolved]
  - Coordination abnormal [Recovered/Resolved]
  - Corneal reflex decreased [Recovered/Resolved]
  - Accidental overdose [Unknown]
  - Drug-induced liver injury [Recovered/Resolved]
  - Tubulointerstitial nephritis [Recovered/Resolved]
  - Hallucination, visual [Recovered/Resolved]
  - Red blood cell sedimentation rate increased [Recovered/Resolved]
  - Alanine aminotransferase increased [Recovered/Resolved]
  - Urobilinogen urine increased [Recovered/Resolved]
  - Somnolence [Recovered/Resolved]
  - Pupillary reflex impaired [Recovered/Resolved]
  - Dizziness [Recovered/Resolved]
  - White blood cell count increased [Recovered/Resolved]
  - Aspartate aminotransferase increased [Recovered/Resolved]
  - Jaundice [Recovered/Resolved]
  - Slow speech [Recovered/Resolved]
  - Confusional state [Recovered/Resolved]
  - Nausea [Recovered/Resolved]
  - Coma [Unknown]
  - Unresponsive to stimuli [Recovered/Resolved]
  - Eosinophil percentage increased [Recovered/Resolved]
  - Blood immunoglobulin G increased [Recovered/Resolved]
  - Vomiting [Recovered/Resolved]
  - Mental status changes [Recovered/Resolved]
  - Generalised tonic-clonic seizure [Recovered/Resolved]
  - Blood glucose decreased [Recovered/Resolved]
  - Psychomotor hyperactivity [Recovered/Resolved]
  - Overdose [Unknown]
  - Blood albumin decreased [Recovered/Resolved]
  - Blood immunoglobulin M increased [Recovered/Resolved]
  - Blood chloride decreased [Recovered/Resolved]
  - Encephalopathy [Recovered/Resolved]
  - Anxiety [Recovered/Resolved]
  - Lymphocyte percentage increased [Recovered/Resolved]
  - Thymol turbidity test increased [Recovered/Resolved]
  - Blood immunoglobulin A increased [Recovered/Resolved]
